FAERS Safety Report 25077482 (Version 1)
Quarter: 2025Q1

REPORT INFORMATION
  Report Type: Spontaneous
  Country: US (occurrence: US)
  Receive Date: 20250314
  Receipt Date: 20250314
  Transmission Date: 20250409
  Serious: No
  Sender: Haleon PLC
  Company Number: US-HALEON-2232645

PATIENT

DRUGS (4)
  1. SENSODYNE CLINICAL WHITE INTENSIVE CLEAN [Suspect]
     Active Substance: POTASSIUM NITRATE\SODIUM FLUORIDE
     Indication: Tooth discolouration
  2. SENSODYNE CLINICAL WHITE INTENSIVE CLEAN [Suspect]
     Active Substance: POTASSIUM NITRATE\SODIUM FLUORIDE
     Indication: Hyperaesthesia teeth
  3. SENSODYNE CLINICAL WHITE INTENSIVE CLEAN [Suspect]
     Active Substance: POTASSIUM NITRATE\SODIUM FLUORIDE
     Indication: Gingival bleeding
  4. SENSODYNE CLINICAL WHITE INTENSIVE CLEAN [Suspect]
     Active Substance: POTASSIUM NITRATE\SODIUM FLUORIDE
     Indication: Pain

REACTIONS (2)
  - Drug effective for unapproved indication [Unknown]
  - Product use in unapproved indication [Unknown]
